FAERS Safety Report 8224190-8 (Version None)
Quarter: 2012Q1

REPORT INFORMATION
  Report Type: 
  Country: None (occurrence: None)
  Receive Date: 20120321
  Receipt Date: 20120309
  Transmission Date: 20120608
  Serious: Yes (Death, Other)
  Sender: FDA-Public Use
  Company Number: JP-BRISTOL-MYERS SQUIBB COMPANY-16452989

PATIENT
  Age: 63 Year
  Sex: Female

DRUGS (4)
  1. JANUVIA [Concomitant]
     Indication: DIABETES MELLITUS
     Dosage: 30JAN12-UNK,05FEB12-20FEB12
     Route: 048
     Dates: start: 20120130, end: 20120220
  2. SERTRALINE HYDROCHLORIDE [Concomitant]
     Indication: DEPRESSION
     Dosage: JZOLOFT
     Route: 048
     Dates: start: 20100827
  3. MIGLITOL [Concomitant]
     Indication: DIABETES MELLITUS
     Route: 048
     Dates: start: 20120203
  4. METFORMIN HCL [Suspect]
     Indication: DIABETES MELLITUS
     Route: 048
     Dates: start: 20120215, end: 20120220

REACTIONS (4)
  - HEPATIC FUNCTION ABNORMAL [None]
  - URINARY TRACT INFECTION [None]
  - SEPSIS [None]
  - LACTIC ACIDOSIS [None]
